FAERS Safety Report 14154032 (Version 1)
Quarter: 2017Q4

REPORT INFORMATION
  Report Type: Spontaneous
  Country: US (occurrence: US)
  Receive Date: 20171102
  Receipt Date: 20171102
  Transmission Date: 20180321
  Serious: Yes (Hospitalization)
  Sender: FDA-Public Use
  Company Number: US-SA-200810558US

PATIENT
  Age: 44 Year
  Sex: Male

DRUGS (2)
  1. KETEK [Suspect]
     Active Substance: TELITHROMYCIN
     Indication: UPPER RESPIRATORY TRACT INFECTION
     Route: 048
  2. ASPIRIN. [Concomitant]
     Active Substance: ASPIRIN
     Indication: PYREXIA
     Route: 065

REACTIONS (10)
  - Headache [Recovering/Resolving]
  - Musculoskeletal stiffness [Recovering/Resolving]
  - Influenza [Recovering/Resolving]
  - Red blood cell sedimentation rate increased [Recovering/Resolving]
  - Chills [Recovering/Resolving]
  - Back pain [Recovering/Resolving]
  - Hepatocellular injury [Recovering/Resolving]
  - Aspartate aminotransferase increased [Recovering/Resolving]
  - Pyrexia [Recovering/Resolving]
  - Alanine aminotransferase increased [Recovering/Resolving]
